FAERS Safety Report 6821983-6 (Version None)
Quarter: 2010Q3

REPORT INFORMATION
  Report Type: 
  Country: None (occurrence: None)
  Receive Date: 20100707
  Receipt Date: 20100707
  Transmission Date: 20110219
  Serious: Yes (Hospitalization, Other)
  Sender: FDA-Public Use
  Company Number: None

PATIENT
  Sex: Female
  Weight: 66.2 kg

DRUGS (3)
  1. ABRAXANE [Suspect]
     Indication: GASTROINTESTINAL HAEMORRHAGE
  2. CARBOPLATIN [Suspect]
  3. AVASTIN [Suspect]

REACTIONS (1)
  - GASTROINTESTINAL HAEMORRHAGE [None]
